FAERS Safety Report 5161072-2 (Version None)
Quarter: 2006Q4

REPORT INFORMATION
  Report Type: 
  Country: None (occurrence: None)
  Receive Date: 20061121
  Receipt Date: 20061107
  Transmission Date: 20070319
  Serious: Yes (Death)
  Sender: FDA-Public Use
  Company Number: 2006135930

PATIENT
  Age: 73 Year
  Sex: Female

DRUGS (3)
  1. ZYVOX [Suspect]
     Indication: STAPHYLOCOCCAL INFECTION
     Dosage: 1200 MG, INTRAVENOUS
     Route: 042
     Dates: start: 20061023, end: 20061030
  2. SOLDACTONE           (POTASSIUM CANRENOATE, TROMETAMOL) [Suspect]
     Dosage: INTRAVENOUS
     Route: 042
     Dates: end: 20061030
  3. PREDNISOLONE [Suspect]

REACTIONS (3)
  - CONDITION AGGRAVATED [None]
  - DRUG ERUPTION [None]
  - GASTRIC CANCER [None]
